FAERS Safety Report 9100916 (Version 1)
Quarter: 2013Q1

REPORT INFORMATION
  Report Type: Spontaneous
  Country: US (occurrence: None)
  Receive Date: 20130220
  Receipt Date: 20130220
  Transmission Date: 20140127
  Serious: Yes (Hospitalization)
  Sender: FDA-Public Use
  Company Number: None

PATIENT
  Age: 35 Year
  Sex: Male

DRUGS (1)
  1. AMOXICILLIN/CLAVULANATE POTASSIUM [Suspect]
     Dosage: 1 TABLET  TWICE DAILY  PO?10 DAYS?12/03/2012  --  12/23/2012
     Route: 048
     Dates: start: 20121203, end: 20131223

REACTIONS (3)
  - Jaundice cholestatic [None]
  - Pruritus [None]
  - Hepatotoxicity [None]
